FAERS Safety Report 20147676 (Version 2)
Quarter: 2024Q2

REPORT INFORMATION
  Report Type: Spontaneous
  Country: US (occurrence: US)
  Receive Date: 20211203
  Receipt Date: 20240625
  Transmission Date: 20240716
  Serious: No
  Sender: FDA-Public Use
  Company Number: US-SA-SAC20211129001750

PATIENT
  Sex: Female

DRUGS (13)
  1. DUPIXENT [Suspect]
     Active Substance: DUPILUMAB
     Indication: Cough variant asthma
     Dosage: 300MG, Q15D
     Route: 058
     Dates: start: 20191219
  2. BACLOFEN [Concomitant]
     Active Substance: BACLOFEN
  3. CELECOXIB [Concomitant]
     Active Substance: CELECOXIB
  4. FLUTICASONE [Concomitant]
     Active Substance: FLUTICASONE
  5. GABAPENTIN [Concomitant]
     Active Substance: GABAPENTIN
  6. MONTELUKAST [Concomitant]
     Active Substance: MONTELUKAST SODIUM
  7. OXYCODONE [Concomitant]
     Active Substance: OXYCODONE\OXYCODONE HYDROCHLORIDE
  8. SIMVASTATIN [Concomitant]
     Active Substance: SIMVASTATIN
  9. SPIRIVA [Concomitant]
     Active Substance: TIOTROPIUM BROMIDE MONOHYDRATE
  10. SYMBICORT [Concomitant]
     Active Substance: BUDESONIDE\FORMOTEROL FUMARATE DIHYDRATE
  11. TRAMADOL [Concomitant]
     Active Substance: TRAMADOL\TRAMADOL HYDROCHLORIDE
  12. TRULANCE [Concomitant]
     Active Substance: PLECANATIDE
  13. VENLAFAXINE [Concomitant]
     Active Substance: VENLAFAXINE HYDROCHLORIDE

REACTIONS (2)
  - Asthma [Unknown]
  - Product use in unapproved indication [Unknown]
